FAERS Safety Report 13066607 (Version 1)
Quarter: 2016Q4

REPORT INFORMATION
  Report Type: Spontaneous
  Country: BR (occurrence: BR)
  Receive Date: 20161227
  Receipt Date: 20161227
  Transmission Date: 20170207
  Serious: Yes (Hospitalization, Disabling, Other)
  Sender: FDA-Public Use
  Company Number: BR-JNJFOC-20161219380

PATIENT
  Age: 80 Year
  Sex: Male

DRUGS (11)
  1. DIPYRONE [Concomitant]
     Active Substance: DIPYRONE
     Route: 065
  2. SOFOSBUVIR [Suspect]
     Active Substance: SOFOSBUVIR
     Indication: HEPATITIS C
     Route: 065
     Dates: start: 20160621
  3. TACROLIMUS. [Concomitant]
     Active Substance: TACROLIMUS
     Route: 065
  4. MULTIVITAMINS [Concomitant]
     Active Substance: VITAMINS
     Dosage: DOSES: DROPS
     Route: 048
  5. OLYSIO [Suspect]
     Active Substance: SIMEPREVIR
     Indication: HEPATITIS C
     Route: 065
     Dates: start: 20160621, end: 20160912
  6. INSULINE NPH [Concomitant]
     Active Substance: INSULIN PORK\INSULIN PURIFIED PORK
     Route: 065
  7. MYCOPHENOLATE SODIUM [Concomitant]
     Active Substance: MYCOPHENOLATE SODIUM
     Route: 065
  8. INSULIN HUMAN [Concomitant]
     Active Substance: INSULIN HUMAN
     Route: 065
  9. HYDRALAZINE [Concomitant]
     Active Substance: HYDRALAZINE HYDROCHLORIDE
     Route: 065
  10. EPOETIN [Concomitant]
     Active Substance: ERYTHROPOIETIN
     Route: 065
  11. BROMOPRIDE [Concomitant]
     Active Substance: BROMOPRIDE
     Route: 065

REACTIONS (14)
  - Asthenia [Unknown]
  - Muscular weakness [Not Recovered/Not Resolved]
  - Chest pain [Unknown]
  - Fungal infection [Unknown]
  - Renal impairment [Unknown]
  - Neuropathy peripheral [Unknown]
  - Oxygen saturation decreased [Unknown]
  - Hyperkalaemia [Unknown]
  - Gait disturbance [Not Recovered/Not Resolved]
  - Embolism [Recovered/Resolved]
  - Device related sepsis [Recovered/Resolved]
  - Product use issue [Unknown]
  - Off label use [Unknown]
  - Dyspnoea [Unknown]

NARRATIVE: CASE EVENT DATE: 20160627
